FAERS Safety Report 5155932-6 (Version None)
Quarter: 2006Q4

REPORT INFORMATION
  Report Type: 
  Country: None (occurrence: None)
  Receive Date: 20061122
  Receipt Date: 20041123
  Transmission Date: 20070319
  Serious: Yes (Hospitalization, Other)
  Sender: FDA-Public Use
  Company Number: FR-ABBOTT-04P-056-0281559-00

PATIENT
  Age: 66 Year
  Sex: Female

DRUGS (11)
  1. HUMIRA [Suspect]
     Indication: POLYARTHRITIS
     Route: 058
     Dates: start: 20031215, end: 20040923
  2. HUMIRA [Suspect]
     Indication: RHEUMATOID ARTHRITIS
  3. METHOTREXATE [Suspect]
     Indication: POLYARTHRITIS
     Route: 048
     Dates: start: 20031215, end: 20041015
  4. METHOTREXATE [Suspect]
     Indication: RHEUMATOID ARTHRITIS
  5. ATENOLOL [Concomitant]
     Indication: HYPERTENSION
     Route: 048
  6. AMLODIPINE [Concomitant]
     Indication: HYPERTENSION
     Route: 048
  7. BUMETANIDE [Concomitant]
     Indication: HYPERTENSION
     Route: 048
  8. CORTICOIDS [Concomitant]
     Indication: POLYARTHRITIS
     Route: 048
     Dates: end: 20040601
  9. KETOPROFEN [Concomitant]
     Indication: ARTHRALGIA
  10. TRAMADOL HCL [Concomitant]
     Indication: ARTHRALGIA
  11. PARACETAMOL, CAFFEINE, DEXTROPROPOXYPHENE [Concomitant]
     Indication: ARTHRALGIA

REACTIONS (19)
  - ABDOMINAL PAIN [None]
  - ACUTE RESPIRATORY DISTRESS SYNDROME [None]
  - ANOREXIA [None]
  - BACTERIAL INFECTION [None]
  - CHILLS [None]
  - CYTOLYTIC HEPATITIS [None]
  - CYTOMEGALOVIRUS ANTIBODY POSITIVE [None]
  - DYSPNOEA EXERTIONAL [None]
  - GENERAL PHYSICAL HEALTH DETERIORATION [None]
  - HYPERVENTILATION [None]
  - INFECTION IN AN IMMUNOCOMPROMISED HOST [None]
  - INFLAMMATION [None]
  - LEGIONELLA INFECTION [None]
  - LUNG DISORDER [None]
  - MUSCULOSKELETAL PAIN [None]
  - RALES [None]
  - RENAL FAILURE ACUTE [None]
  - WEIGHT DECREASED [None]
  - WHITE BLOOD CELL COUNT DECREASED [None]
